FAERS Safety Report 6863758-8 (Version None)
Quarter: 2010Q3

REPORT INFORMATION
  Report Type: 
  Country: None (occurrence: None)
  Receive Date: 20100721
  Receipt Date: 20080422
  Transmission Date: 20110219
  Serious: No
  Sender: FDA-Public Use
  Company Number: US-PFIZER INC-2008022617

PATIENT
  Sex: Female

DRUGS (3)
  1. CHANTIX [Suspect]
     Indication: SMOKING CESSATION THERAPY
     Route: 048
     Dates: start: 20080216, end: 20080306
  2. BUPROPION [Suspect]
     Indication: DEPRESSION
     Dates: start: 20080308, end: 20080401
  3. AZITHROMYCIN [Concomitant]
     Dates: start: 20080215, end: 20080219

REACTIONS (6)
  - DEPRESSION [None]
  - DIARRHOEA [None]
  - DYSPEPSIA [None]
  - NAUSEA [None]
  - TINNITUS [None]
  - VOMITING [None]
